FAERS Safety Report 9271142 (Version 3)
Quarter: 2015Q2

REPORT INFORMATION
  Report Type: Report from Study
  Country: US (occurrence: US)
  Receive Date: 20130506
  Receipt Date: 20150430
  Transmission Date: 20150821
  Serious: Yes (Hospitalization, Other)
  Sender: FDA-Public Use
  Company Number: PHEH2013US007949

PATIENT
  Age: 67 Year
  Sex: Male

DRUGS (3)
  1. NEORAL [Suspect]
     Active Substance: CYCLOSPORINE
     Indication: RENAL TRANSPLANT
     Dosage: 25 MG, BID
     Route: 048
     Dates: start: 20130104
  2. NEORAL [Suspect]
     Active Substance: CYCLOSPORINE
     Dosage: 25 MG, 3 CAPSULES BY MOUTH EVERY 12 HOURS
     Route: 048
  3. NEORAL [Suspect]
     Active Substance: CYCLOSPORINE
     Dosage: 100 MG, BID
     Route: 048

REACTIONS (4)
  - Myocardial infarction [Unknown]
  - Heart rate irregular [Unknown]
  - Renal mass [Unknown]
  - Cardiac failure [Unknown]

NARRATIVE: CASE EVENT DATE: 2013
